FAERS Safety Report 6424270-3 (Version None)
Quarter: 2009Q4

REPORT INFORMATION
  Report Type: 
  Country: None (occurrence: None)
  Receive Date: 20091102
  Receipt Date: 20091020
  Transmission Date: 20100525
  Serious: Yes (Hospitalization)
  Sender: FDA-Public Use
  Company Number: CA-WATSON-2009-08975

PATIENT
  Age: 53 Year
  Sex: Male

DRUGS (2)
  1. FLUOROURACIL [Suspect]
     Indication: COLON CANCER STAGE III
     Dosage: 400 MG/M2, BOLUS DAY 1
     Route: 042
  2. FLUOROURACIL [Suspect]
     Dosage: 2400 MG/M2, CONTINUOUS INFUSION
     Route: 042

REACTIONS (4)
  - COMA [None]
  - CONFUSIONAL STATE [None]
  - ENCEPHALOPATHY [None]
  - GRAND MAL CONVULSION [None]
